FAERS Safety Report 15888126 (Version 1)
Quarter: 2019Q1

REPORT INFORMATION
  Report Type: Other
  Country: SE (occurrence: US)
  Receive Date: 20190130
  Receipt Date: 20190130
  Transmission Date: 20190417
  Serious: Yes (Other)
  Sender: FDA-Public Use
  Company Number: US-GUARDIAN DRUG COMPANY-2061912

PATIENT
  Age: 35 Year
  Sex: Male

DRUGS (2)
  1. CHILDRENS IBUPROFEN [Suspect]
     Active Substance: IBUPROFEN
     Indication: TONSILLITIS
     Route: 065
  2. AMOXICILLIN AND CLAVULANATE POTASSIUM [Suspect]
     Active Substance: AMOXICILLIN\CLAVULANATE POTASSIUM
     Route: 065

REACTIONS (1)
  - Meningitis aseptic [Recovered/Resolved]
